FAERS Safety Report 7540354-0 (Version None)
Quarter: 2011Q2

REPORT INFORMATION
  Report Type: 
  Country: None (occurrence: None)
  Receive Date: 20110610
  Receipt Date: 20110531
  Transmission Date: 20111010
  Serious: Yes (Other)
  Sender: FDA-Public Use
  Company Number: PHHY2011SE48359

PATIENT
  Age: 64 Year
  Sex: Female

DRUGS (5)
  1. LASIX [Concomitant]
  2. GLEEVEC [Suspect]
     Indication: CHRONIC MYELOID LEUKAEMIA
     Dosage: 400 MG, DAILY
     Dates: start: 20030301
  3. ALLOPURINOL [Concomitant]
  4. CALCIUM CARBONATE W/COLECALCIFEROL [Concomitant]
  5. SIMVASTATIN [Concomitant]

REACTIONS (4)
  - PAIN IN JAW [None]
  - PIGMENTATION BUCCAL [None]
  - PALATAL DISORDER [None]
  - MUCOSAL DISCOLOURATION [None]
